FAERS Safety Report 6997197-6 (Version None)
Quarter: 2010Q3

REPORT INFORMATION
  Report Type: 
  Country: None (occurrence: None)
  Receive Date: 20100918
  Receipt Date: 20090914
  Transmission Date: 20110219
  Serious: No
  Sender: FDA-Public Use
  Company Number: US-WYE-H10965609

PATIENT
  Sex: Female
  Weight: 68.1 kg

DRUGS (3)
  1. PRISTIQ [Suspect]
     Indication: DEPRESSION
     Route: 048
     Dates: start: 20081001, end: 20090401
  2. ABILIFY [Concomitant]
  3. ADDERALL 10 [Concomitant]

REACTIONS (8)
  - BRUXISM [None]
  - DERMATITIS CONTACT [None]
  - MIGRAINE [None]
  - MUSCLE TIGHTNESS [None]
  - PAIN IN JAW [None]
  - PRURITUS [None]
  - RASH [None]
  - STOMATITIS [None]
